FAERS Safety Report 4842119-7 (Version None)
Quarter: 2005Q4

REPORT INFORMATION
  Report Type: 
  Country: None (occurrence: None)
  Receive Date: 20051130
  Receipt Date: 20051004
  Transmission Date: 20060501
  Serious: Yes (Hospitalization, Disabling)
  Sender: FDA-Public Use
  Company Number: US-MERCK-0510USA02344

PATIENT
  Age: 49 Year
  Sex: Female
  Weight: 86 kg

DRUGS (7)
  1. VIOXX [Suspect]
     Indication: OSTEOARTHRITIS
     Route: 048
     Dates: start: 20010701, end: 20020801
  2. VIOXX [Suspect]
     Route: 048
     Dates: start: 20010701, end: 20020801
  3. LASIX [Concomitant]
     Route: 065
  4. POTASSIUM (UNSPECIFIED) [Concomitant]
     Route: 065
  5. CARDIZEM [Concomitant]
     Route: 065
  6. [THERAPY UNSPECIFIED] [Concomitant]
     Route: 065
  7. CELEBREX [Suspect]
     Route: 065

REACTIONS (5)
  - ANGINA PECTORIS [None]
  - BACK INJURY [None]
  - HEART INJURY [None]
  - JOINT INJURY [None]
  - MYOCARDIAL INFARCTION [None]
